FAERS Safety Report 19366793 (Version 1)
Quarter: 2021Q2

REPORT INFORMATION
  Report Type: Spontaneous
  Country: US (occurrence: US)
  Receive Date: 20210603
  Receipt Date: 20210603
  Transmission Date: 20210717
  Serious: Yes (Hospitalization, Other)
  Sender: FDA-Public Use
  Company Number: NVSC2021US123997

PATIENT
  Sex: Female

DRUGS (12)
  1. LORAZEPAM. [Suspect]
     Active Substance: LORAZEPAM
     Indication: FOETAL EXPOSURE DURING PREGNANCY
     Dosage: MATERNAL DOSE: 1 MG,QD (WAS ADDED TO RISPERIDONE AND INCREASED TO 3 TIMES A DAY OVER THE DURATION OF
     Route: 064
  2. LORAZEPAM. [Suspect]
     Active Substance: LORAZEPAM
     Dosage: MATERNAL DOSE: 1 MG, BID (DURING ECT)
     Route: 064
  3. NITROFURANTOIN. [Suspect]
     Active Substance: NITROFURANTOIN
     Indication: FOETAL EXPOSURE DURING PREGNANCY
     Dosage: MATERNAL DOSE: UNK
     Route: 064
  4. LORAZEPAM. [Suspect]
     Active Substance: LORAZEPAM
     Dosage: MATERNAL DOSE: SLOWLY TAPERED DOWN
     Route: 064
  5. MEMANTINE. [Suspect]
     Active Substance: MEMANTINE
     Dosage: MATERNAL DOSE: 15 MG, QD (WAS TITRATED TO 10 MG IN THE MORNING AND 5 MG AT NIGHT)
     Route: 064
  6. FOLIC ACID. [Suspect]
     Active Substance: FOLIC ACID
     Indication: FOETAL EXPOSURE DURING PREGNANCY
     Dosage: MATERNAL DOSE: 3 MG, QD
     Route: 064
  7. MEMANTINE. [Suspect]
     Active Substance: MEMANTINE
     Dosage: MATERNAL DOSE: 10 MG, BID (DURING ECT)
     Route: 064
  8. CANNABIS [Suspect]
     Active Substance: CANNABIS SATIVA SUBSP. INDICA TOP
     Indication: FOETAL EXPOSURE DURING PREGNANCY
     Dosage: MATERNAL DOSE: 3.5 QD (STARTING AT THE AGE OF 18 YEARS)
     Route: 064
  9. PENICILLIN G BENZATHINE [Suspect]
     Active Substance: PENICILLIN G BENZATHINE
     Indication: FOETAL EXPOSURE DURING PREGNANCY
     Dosage: MATERNAL DOSE: UNK
     Route: 064
  10. PRENATAL VITAMINS [Suspect]
     Active Substance: VITAMINS
     Indication: FOETAL EXPOSURE DURING PREGNANCY
     Dosage: MATERNAL DOSE: UNK
     Route: 064
  11. RISPERIDONE. [Suspect]
     Active Substance: RISPERIDONE
     Indication: FOETAL EXPOSURE DURING PREGNANCY
     Dosage: MATERNAL DOSE:  4 MG QD (1 MG IN THE MORNING AND 3 MG AT BEDTIME)
     Route: 064
  12. MEMANTINE. [Suspect]
     Active Substance: MEMANTINE
     Indication: FOETAL EXPOSURE DURING PREGNANCY
     Dosage: MATERNAL DOSE: 5 MG, QD
     Route: 064

REACTIONS (6)
  - Foetal exposure during pregnancy [Unknown]
  - Retinopathy of prematurity [Recovered/Resolved]
  - Premature baby [Unknown]
  - Anaemia neonatal [Recovering/Resolving]
  - Infantile apnoea [Recovered/Resolved]
  - Neonatal respiratory distress syndrome [Unknown]
